FAERS Safety Report 4972097-1 (Version None)
Quarter: 2006Q2

REPORT INFORMATION
  Report Type: 
  Country: None (occurrence: None)
  Receive Date: 20060412
  Receipt Date: 20060412
  Transmission Date: 20061013
  Serious: Yes (Hospitalization)
  Sender: FDA-Public Use
  Company Number: None

PATIENT
  Age: 48 Year
  Sex: Male
  Weight: 75 kg

DRUGS (13)
  1. LYRICA [Suspect]
     Indication: NEUROPATHY PERIPHERAL
     Dosage: 75MG Q8H PO
     Route: 048
     Dates: start: 20060331, end: 20060402
  2. CEFEPIME [Concomitant]
  3. CYMBALTA [Concomitant]
  4. LOVENOX [Concomitant]
  5. PEPCID [Concomitant]
  6. SYNTHROID [Concomitant]
  7. FLAGYL [Concomitant]
  8. TRAZODONE HCL [Concomitant]
  9. MORPHINE [Concomitant]
  10. LOVENOX [Concomitant]
  11. COUMADIN [Concomitant]
  12. LORAZEPAM [Concomitant]
  13. OXYCODONE [Concomitant]

REACTIONS (2)
  - HALLUCINATION, AUDITORY [None]
  - HALLUCINATION, VISUAL [None]
